FAERS Safety Report 10204345 (Version 3)
Quarter: 2014Q3

REPORT INFORMATION
  Report Type: Report from Study
  Country: JP (occurrence: JP)
  Receive Date: 20140529
  Receipt Date: 20140717
  Transmission Date: 20150326
  Serious: Yes (Death, Hospitalization, Other)
  Sender: FDA-Public Use
  Company Number: JP-EISAI INC-E2020-12003-SOL-JP

PATIENT
  Age: 78 Year
  Sex: Female

DRUGS (12)
  1. GRACEVIT [Concomitant]
     Active Substance: SITAFLOXACIN
     Route: 048
     Dates: end: 20130311
  2. PARIET [Concomitant]
     Active Substance: RABEPRAZOLE SODIUM
     Route: 048
  3. PROMAC [Concomitant]
     Active Substance: NITROFURANTOIN
     Route: 048
  4. ONEALFA [Concomitant]
     Active Substance: ALFACALCIDOL
     Indication: OSTEOPOROSIS
     Route: 048
     Dates: start: 20120831
  5. MICARDIS [Concomitant]
     Active Substance: TELMISARTAN
     Indication: HYPERTENSION
     Route: 048
     Dates: start: 20111125, end: 20121227
  6. ARICEPT [Suspect]
     Active Substance: DONEPEZIL HYDROCHLORIDE
     Indication: DEMENTIA ALZHEIMER^S TYPE
     Route: 048
     Dates: start: 20111007, end: 20111012
  7. DORNER [Concomitant]
     Active Substance: BERAPROST SODIUM
     Route: 048
     Dates: end: 20130311
  8. GASMOTIN [Concomitant]
     Active Substance: MOSAPRIDE CITRATE
     Route: 048
  9. LOXONIN [Concomitant]
     Active Substance: LOXOPROFEN SODIUM
     Dosage: UNKNOWN
  10. AMLODIN [Concomitant]
     Active Substance: AMLODIPINE BESYLATE
     Indication: HYPERTENSION
     Route: 048
     Dates: start: 20120316
  11. ARICEPT [Suspect]
     Active Substance: DONEPEZIL HYDROCHLORIDE
     Route: 048
     Dates: start: 20111013, end: 20111104
  12. ARICEPT [Suspect]
     Active Substance: DONEPEZIL HYDROCHLORIDE
     Route: 048
     Dates: start: 20111216, end: 20130222

REACTIONS (3)
  - Anaemia [Recovering/Resolving]
  - Cardiac failure [Recovering/Resolving]
  - Renal impairment [Fatal]

NARRATIVE: CASE EVENT DATE: 20111027
